FAERS Safety Report 11101838 (Version 1)
Quarter: 2015Q2

REPORT INFORMATION
  Report Type: Spontaneous
  Country: US (occurrence: US)
  Receive Date: 20150509
  Receipt Date: 20150509
  Transmission Date: 20150821
  Serious: No
  Sender: FDA-Public Use
  Company Number: US-ASTRAZENECA-2015SE41368

PATIENT
  Age: 16194 Day
  Sex: Male
  Weight: 104.3 kg

DRUGS (6)
  1. TRIMEX [Concomitant]
  2. PILLS FOR D IABETES [Concomitant]
     Indication: DIABETES MELLITUS
     Route: 048
  3. PILLS FOR HIGH BLOOD PRESSURE [Concomitant]
     Indication: BLOOD PRESSURE ABNORMAL
     Route: 048
  4. PILLS FOR HIGH CHOLESTEROL [Concomitant]
     Indication: BLOOD CHOLESTEROL INCREASED
     Route: 048
  5. INSULIN [Concomitant]
     Active Substance: INSULIN NOS
     Indication: TYPE 2 DIABETES MELLITUS
  6. FARXIGA [Suspect]
     Active Substance: DAPAGLIFLOZIN PROPANEDIOL
     Indication: TYPE 2 DIABETES MELLITUS
     Route: 048
     Dates: start: 201503, end: 20150426

REACTIONS (2)
  - Penis disorder [Not Recovered/Not Resolved]
  - Skin exfoliation [Unknown]

NARRATIVE: CASE EVENT DATE: 20150425
